FAERS Safety Report 16092114 (Version 2)
Quarter: 2019Q3

REPORT INFORMATION
  Report Type: Spontaneous
  Country: JP (occurrence: JP)
  Receive Date: 20190319
  Receipt Date: 20190807
  Transmission Date: 20191004
  Serious: Yes (Death)
  Sender: FDA-Public Use
  Company Number: JP-INCYTE CORPORATION-2019IN002481

PATIENT

DRUGS (1)
  1. JAKAVI [Suspect]
     Active Substance: RUXOLITINIB
     Indication: GRAFT VERSUS HOST DISEASE IN LUNG
     Dosage: 10 MG, UNK
     Route: 048
     Dates: start: 20180720, end: 20181025

REACTIONS (3)
  - Bronchopulmonary aspergillosis [Fatal]
  - Drug ineffective [Fatal]
  - Off label use [Unknown]

NARRATIVE: CASE EVENT DATE: 20180720
